FAERS Safety Report 4336282-4 (Version None)
Quarter: 2004Q2

REPORT INFORMATION
  Report Type: 
  Country: None (occurrence: None)
  Receive Date: 20040407
  Receipt Date: 20040324
  Transmission Date: 20050107
  Serious: Yes (Death, Hospitalization)
  Sender: FDA-Public Use
  Company Number: USA040362967

PATIENT
  Age: 64 Year
  Sex: Female

DRUGS (2)
  1. FORTEO [Suspect]
     Indication: MULTIPLE FRACTURES
     Dates: start: 20040130
  2. PROCRIT (ERYTHROPOIETIN) [Concomitant]

REACTIONS (1)
  - HOSPITALISATION [None]
